FAERS Safety Report 11734625 (Version 1)
Quarter: 2015Q4

REPORT INFORMATION
  Report Type: Spontaneous
  Country: US (occurrence: None)
  Receive Date: 20151112
  Receipt Date: 20151112
  Transmission Date: 20160304
  Serious: No
  Sender: FDA-Public Use
  Company Number: None

PATIENT
  Age: 68 Year
  Sex: Female

DRUGS (3)
  1. FUROSEMIDE. [Concomitant]
     Active Substance: FUROSEMIDE
  2. MYCOPHENOLATE CAPSULES 250 MG ACCORD [Suspect]
     Active Substance: MYCOPHENOLIC ACID
     Route: 048
  3. TACROLIMUS CAPSULES 1 MG SANDOZ [Suspect]
     Active Substance: TACROLIMUS
     Indication: IMMUNOSUPPRESSION
     Dosage: 3 CAPS AM AND 2 CAPS PM
     Route: 048

REACTIONS (3)
  - Oropharyngeal pain [None]
  - Headache [None]
  - Chills [None]

NARRATIVE: CASE EVENT DATE: 20151110
